FAERS Safety Report 9018414 (Version 2)
Quarter: 2013Q2

REPORT INFORMATION
  Report Type: Spontaneous
  Country: US (occurrence: US)
  Receive Date: 20130118
  Receipt Date: 20130416
  Transmission Date: 20140414
  Serious: Yes (Hospitalization)
  Sender: FDA-Public Use
  Company Number: US-BAYER-2013-006155

PATIENT
  Age: 23 Year
  Sex: Female
  Weight: 99.8 kg

DRUGS (4)
  1. SAFYRAL [Suspect]
  2. PROTONIX [Concomitant]
  3. ZITHROMAX [Concomitant]
     Indication: PNEUMONIA
  4. ROCEPHIN [Concomitant]
     Indication: PNEUMONIA

REACTIONS (2)
  - Pulmonary embolism [None]
  - Cholelithiasis [None]
